FAERS Safety Report 17069882 (Version 5)
Quarter: 2020Q1

REPORT INFORMATION
  Report Type: Report from Study
  Country: TR (occurrence: TR)
  Receive Date: 20191125
  Receipt Date: 20200206
  Transmission Date: 20200409
  Serious: Yes (Death, Hospitalization)
  Sender: FDA-Public Use
  Company Number: TR-ROCHE-2481252

PATIENT
  Age: 68 Year
  Sex: Male
  Weight: 59.9 kg

DRUGS (4)
  1. ATEZOLIZUMAB. [Suspect]
     Active Substance: ATEZOLIZUMAB
     Indication: RENAL CELL CARCINOMA
     Dosage: LAST DOSE OF ATEZOLIZUMAB 1200 MG PRIOR TO ADENOCARSINOMA ON 13/NOV/2019?ON 29/MAY/2019, HE RECEIVED
     Route: 042
     Dates: start: 20180802
  2. LEVOTIRON [Concomitant]
     Active Substance: LEVOTHYROXINE SODIUM
     Indication: HYPOTHYROIDISM
     Route: 048
     Dates: start: 20150429
  3. ARCAPTA NEOHALER [Concomitant]
     Active Substance: INDACATEROL MALEATE
     Indication: CHRONIC OBSTRUCTIVE PULMONARY DISEASE
     Route: 045
     Dates: start: 20140825
  4. RANITAB [RANITIDINE HYDROCHLORIDE] [Concomitant]
     Indication: GASTRIC ULCER
     Route: 048
     Dates: start: 20171009

REACTIONS (3)
  - Adenocarcinoma [Recovering/Resolving]
  - Pneumonia [Fatal]
  - Pneumonia [Recovered/Resolved]

NARRATIVE: CASE EVENT DATE: 20190531
